FAERS Safety Report 16089746 (Version 1)
Quarter: 2019Q1

REPORT INFORMATION
  Report Type: Spontaneous
  Country: CA (occurrence: CA)
  Receive Date: 20190319
  Receipt Date: 20190319
  Transmission Date: 20190418
  Serious: Yes (Hospitalization, Other)
  Sender: FDA-Public Use
  Company Number: CA-BRISTOL-MYERS SQUIBB COMPANY-BMS-2019-025630

PATIENT
  Age: 21 Year
  Sex: Female
  Weight: 65.76 kg

DRUGS (1)
  1. ELIQUIS [Suspect]
     Active Substance: APIXABAN
     Indication: PULMONARY EMBOLISM
     Dosage: 2.5 MILLIGRAM, BID
     Route: 048

REACTIONS (6)
  - Fatigue [Recovered/Resolved]
  - Fine motor skill dysfunction [Recovered/Resolved]
  - Gait disturbance [Recovered/Resolved]
  - Clonus [Recovered/Resolved]
  - Muscle fatigue [Recovered/Resolved]
  - Paralysis [Recovered/Resolved]
